FAERS Safety Report 5631870-7 (Version None)
Quarter: 2008Q1

REPORT INFORMATION
  Report Type: 
  Country: None (occurrence: None)
  Receive Date: 20080219
  Receipt Date: 20080219
  Transmission Date: 20080703
  Serious: No
  Sender: FDA-Public Use
  Company Number: None

PATIENT
  Sex: Female
  Weight: 51.3 kg

DRUGS (1)
  1. TEMOZOLOMIDE [Suspect]
     Dosage: 5060 MG

REACTIONS (1)
  - LYMPHOCYTE COUNT DECREASED [None]
